FAERS Safety Report 7726954-3 (Version None)
Quarter: 2011Q3

REPORT INFORMATION
  Report Type: 
  Country: None (occurrence: None)
  Receive Date: 20110902
  Receipt Date: 20110830
  Transmission Date: 20111222
  Serious: Yes (Other)
  Sender: FDA-Public Use
  Company Number: BR-PFIZER INC-2011197613

PATIENT
  Age: 52 Year
  Sex: Female
  Weight: 79 kg

DRUGS (12)
  1. ALPRAZOLAM [Concomitant]
     Indication: MENTAL DISORDER
     Dosage: UNK
     Dates: start: 20000101
  2. SYNTHROID [Concomitant]
     Indication: HYPOTHYROIDISM
     Dosage: UNK
  3. SYNTHROID [Concomitant]
     Indication: THYROID DISORDER
  4. VARENICLINE TARTRATE [Suspect]
     Dosage: 0.5 MG, 2X/DAY
     Route: 048
     Dates: start: 20110801, end: 20110801
  5. VARENICLINE TARTRATE [Suspect]
     Dosage: 1 MG, 2X/DAY
     Route: 048
     Dates: start: 20110801
  6. VARENICLINE TARTRATE [Suspect]
     Indication: SMOKING CESSATION THERAPY
     Dosage: 0.5 MG, 1X/DAY
     Route: 048
     Dates: start: 20110805, end: 20110801
  7. ALPRAZOLAM [Concomitant]
     Indication: SLEEP DISORDER
  8. LEXAPRO [Concomitant]
     Indication: MENTAL DISORDER
     Dosage: UNK
     Dates: start: 20050101
  9. LEXAPRO [Concomitant]
     Indication: ANTIDEPRESSANT THERAPY
  10. SIMVASTATIN [Concomitant]
     Indication: BLOOD CHOLESTEROL INCREASED
     Dosage: UNK
     Dates: start: 20060101
  11. ATACAND [Concomitant]
     Indication: HYPERTENSION
     Dosage: UNK
     Dates: start: 20050101
  12. CLINFAR [Concomitant]
     Indication: BLOOD CHOLESTEROL
     Dosage: UNK

REACTIONS (2)
  - BEDRIDDEN [None]
  - DISORIENTATION [None]
